FAERS Safety Report 7131375-0 (Version None)
Quarter: 2010Q4

REPORT INFORMATION
  Report Type: 
  Country: None (occurrence: None)
  Receive Date: 20101201
  Receipt Date: 20101119
  Transmission Date: 20110411
  Serious: Yes (Other)
  Sender: FDA-Public Use
  Company Number: DE-PFIZER INC-2010154127

PATIENT
  Age: 39 Year
  Sex: Male

DRUGS (2)
  1. AZULFIDINE [Suspect]
     Indication: RHEUMATOID ARTHRITIS
     Dosage: 1 DF, 2X/DAY
  2. AZULFIDINE [Suspect]
     Dosage: 2 DF, 2X/DAY

REACTIONS (1)
  - DIZZINESS [None]
